FAERS Safety Report 17503405 (Version 1)
Quarter: 2020Q1

REPORT INFORMATION
  Report Type: Spontaneous
  Country: US (occurrence: US)
  Receive Date: 20200305
  Receipt Date: 20200305
  Transmission Date: 20200409
  Serious: No
  Sender: FDA-Public Use
  Company Number: US-ROCHE-2303722

PATIENT
  Sex: Female
  Weight: 74.46 kg

DRUGS (4)
  1. LEVOTHYROXINE. [Concomitant]
     Active Substance: LEVOTHYROXINE
     Dosage: ONGOING: UNK
     Route: 048
     Dates: start: 20190409
  2. SINGULAIR [Concomitant]
     Active Substance: MONTELUKAST SODIUM
     Dosage: ONGOING: UNK
     Route: 065
     Dates: start: 20190409
  3. XOLAIR [Suspect]
     Active Substance: OMALIZUMAB
     Indication: ASTHMA
     Route: 058
     Dates: start: 20190315
  4. VENTOLIN [Concomitant]
     Active Substance: ALBUTEROL SULFATE
     Dosage: ONGOING: UNK
     Route: 055
     Dates: start: 20190409

REACTIONS (2)
  - Rash [Unknown]
  - Urticaria [Unknown]
